FAERS Safety Report 9792648 (Version 1)
Quarter: 2013Q4

REPORT INFORMATION
  Report Type: Spontaneous
  Country: US (occurrence: None)
  Receive Date: 20131231
  Receipt Date: 20131231
  Transmission Date: 20140711
  Serious: Yes (Disabling)
  Sender: FDA-Public Use
  Company Number: None

PATIENT
  Age: 73 Year
  Sex: Female
  Weight: 55.79 kg

DRUGS (3)
  1. WELLBUTRIN [Suspect]
     Indication: FATIGUE
     Dosage: 1 PILL
     Route: 048
     Dates: start: 20131212, end: 20131226
  2. CURCUMIN [Concomitant]
  3. PROBIOTIC [Concomitant]

REACTIONS (1)
  - Blood pressure increased [None]
